FAERS Safety Report 15472242 (Version 2)
Quarter: 2018Q4

REPORT INFORMATION
  Report Type: Spontaneous
  Country: DE (occurrence: DE)
  Receive Date: 20181008
  Receipt Date: 20181115
  Transmission Date: 20190205
  Serious: Yes (Hospitalization)
  Sender: FDA-Public Use
  Company Number: DE-SUN PHARMACEUTICAL INDUSTRIES LTD-2017RR-144158

PATIENT
  Age: 67 Year
  Sex: Male
  Weight: 82 kg

DRUGS (4)
  1. BISOPROLOL [Concomitant]
     Active Substance: BISOPROLOL
     Indication: PRODUCT USED FOR UNKNOWN INDICATION
     Dosage: DAILY DOSE: 10 MG MILLIGRAM(S) EVERY DAY
     Route: 065
  2. LOSARTAN. [Concomitant]
     Active Substance: LOSARTAN
     Indication: PRODUCT USED FOR UNKNOWN INDICATION
     Dosage: DAILY DOSE: 100 MG MILLIGRAM(S) EVERY DAY
     Route: 065
  3. TAMSULOSIN [Suspect]
     Active Substance: TAMSULOSIN
     Indication: PRODUCT USED FOR UNKNOWN INDICATION
     Dosage: 0.4 MG, QD
     Route: 048
     Dates: start: 20170218, end: 20170223
  4. OMEPRAZOL [Concomitant]
     Active Substance: OMEPRAZOLE
     Indication: PRODUCT USED FOR UNKNOWN INDICATION
     Dosage: DAILY DOSE: 40 MG MILLIGRAM(S) EVERY DAY
     Route: 065

REACTIONS (3)
  - Gamma-glutamyltransferase increased [Recovered/Resolved]
  - Transaminases increased [Recovered/Resolved]
  - Jaundice [Unknown]

NARRATIVE: CASE EVENT DATE: 20170222
